FAERS Safety Report 12600434 (Version 1)
Quarter: 2016Q3

REPORT INFORMATION
  Report Type: Report from Study
  Country: CA (occurrence: CA)
  Receive Date: 20160727
  Receipt Date: 20160727
  Transmission Date: 20161109
  Serious: Yes (Other)
  Sender: FDA-Public Use
  Company Number: CA-BAYER-2016-069957

PATIENT
  Age: 91 Year
  Sex: Female

DRUGS (13)
  1. SYMBICORT [Concomitant]
     Active Substance: BUDESONIDE\FORMOTEROL FUMARATE DIHYDRATE
  2. ADEMPAS [Suspect]
     Active Substance: RIOCIGUAT
     Indication: PULMONARY HYPERTENSION
     Dosage: 1.0 MG, TID
     Route: 048
  3. ADEMPAS [Suspect]
     Active Substance: RIOCIGUAT
     Indication: PULMONARY HYPERTENSION
     Dosage: 1.5 MG, TID
  4. WARFARIN [Concomitant]
     Active Substance: WARFARIN
  5. CARBAMAZEPINE. [Concomitant]
     Active Substance: CARBAMAZEPINE
  6. CALCIUM [Concomitant]
     Active Substance: CALCIUM
  7. MAGNESIUM [Concomitant]
     Active Substance: MAGNESIUM
  8. HALIBUT [Concomitant]
     Active Substance: PACIFIC HALIBUT
  9. CIPRALEX [Concomitant]
     Active Substance: ESCITALOPRAM OXALATE
  10. ADEMPAS [Suspect]
     Active Substance: RIOCIGUAT
     Indication: PULMONARY HYPERTENSION
     Dosage: UNK
     Dates: start: 20141112
  11. TYLENOL [Suspect]
     Active Substance: ACETAMINOPHEN
  12. VENTOLIN [Concomitant]
     Active Substance: ALBUTEROL SULFATE
  13. HYDROCHLOROTHIAZIDE. [Concomitant]
     Active Substance: HYDROCHLOROTHIAZIDE

REACTIONS (18)
  - Heart rate increased [None]
  - Pain [None]
  - Pain [Not Recovered/Not Resolved]
  - Rash [Not Recovered/Not Resolved]
  - Asthenia [None]
  - Blood pressure diastolic decreased [None]
  - Herpes zoster [Not Recovered/Not Resolved]
  - Blood pressure decreased [None]
  - Chills [None]
  - Discomfort [None]
  - Dizziness [None]
  - Asthenia [Recovered/Resolved]
  - Presyncope [Recovered/Resolved]
  - Constipation [None]
  - Incorrect dose administered [None]
  - Dizziness [None]
  - Blood pressure decreased [None]
  - Product commingling [None]

NARRATIVE: CASE EVENT DATE: 2016
